FAERS Safety Report 16263561 (Version 2)
Quarter: 2022Q1

REPORT INFORMATION
  Report Type: Spontaneous
  Country: PT (occurrence: PT)
  Receive Date: 20190502
  Receipt Date: 20220323
  Transmission Date: 20220423
  Serious: Yes (Other)
  Sender: FDA-Public Use
  Company Number: PT-AUROBINDO-AUR-APL-2019-023573

PATIENT
  Age: 36 Year
  Sex: Female

DRUGS (4)
  1. FLUCONAZOLE [Suspect]
     Active Substance: FLUCONAZOLE
     Indication: Antifungal treatment
     Dosage: 200 MILLIGRAM, ONCE A DAY (200 MG, QD)
     Route: 048
  2. FLUCONAZOLE [Suspect]
     Active Substance: FLUCONAZOLE
     Dosage: 400 MG, UNK
     Route: 048
  3. ACETAMINOPHEN [Suspect]
     Active Substance: ACETAMINOPHEN
     Indication: Pain
     Dosage: UNK UNK, UNK
     Route: 065
  4. FLUCLOXACILLIN [Concomitant]
     Active Substance: FLUCLOXACILLIN
     Indication: Product used for unknown indication
     Dosage: 500 MILLIGRAM, 3 TIMES A DAY (500 MG, TID)
     Route: 048

REACTIONS (1)
  - Exposure via breast milk [Unknown]
